FAERS Safety Report 8538268-2 (Version None)
Quarter: 2012Q3

REPORT INFORMATION
  Report Type: 
  Country: None (occurrence: None)
  Receive Date: 20120726
  Receipt Date: 20120719
  Transmission Date: 20120928
  Serious: No
  Sender: FDA-Public Use
  Company Number: US-BIOGENIDEC-2012BI026691

PATIENT
  Sex: Female

DRUGS (1)
  1. TYSABRI [Suspect]
     Indication: MULTIPLE SCLEROSIS
     Route: 042
     Dates: start: 20120627

REACTIONS (8)
  - WEIGHT DECREASED [None]
  - HYPOPHAGIA [None]
  - FEELING OF BODY TEMPERATURE CHANGE [None]
  - POLLAKIURIA [None]
  - STOMATITIS [None]
  - STRESS [None]
  - HEART RATE INCREASED [None]
  - DECREASED APPETITE [None]
